FAERS Safety Report 10029201 (Version 1)
Quarter: 2014Q1

REPORT INFORMATION
  Report Type: Spontaneous
  Country: US (occurrence: US)
  Receive Date: 20140321
  Receipt Date: 20140321
  Transmission Date: 20141002
  Serious: Yes (Hospitalization)
  Sender: FDA-Public Use
  Company Number: PHHY2014US031129

PATIENT
  Age: 65 Year
  Sex: Male

DRUGS (9)
  1. LISINOPRIL [Suspect]
     Dosage: 10 MG, QD
     Route: 048
  2. LITHIUM CARBONATE [Suspect]
     Indication: BIPOLAR DISORDER
     Dosage: 300 MG, TID
  3. METOPROLOL [Concomitant]
     Dosage: 25 MG, QD
     Route: 048
  4. ASPIRIN [Concomitant]
     Dosage: 81 MG, QD
     Route: 048
  5. WARFARIN [Concomitant]
     Dosage: 5 MG, QHS
     Route: 048
  6. SPIRONOLACTONE [Concomitant]
     Dosage: 12.5 MG, QD
     Route: 048
  7. SIMVASTATIN [Concomitant]
     Dosage: 40 MG, QHS
  8. GABAPENTIN [Concomitant]
     Dosage: 600 MG, TID
     Route: 048
  9. SILDENAFIL [Concomitant]
     Dosage: 100 MG, QD

REACTIONS (15)
  - Aphasia [Recovering/Resolving]
  - Memory impairment [Recovering/Resolving]
  - Slow speech [Recovering/Resolving]
  - Dysgraphia [Recovering/Resolving]
  - Cognitive disorder [Recovering/Resolving]
  - Tremor [Recovering/Resolving]
  - Macrocytosis [Recovering/Resolving]
  - Polydipsia [Recovering/Resolving]
  - Polyuria [Recovering/Resolving]
  - Dehydration [Recovering/Resolving]
  - Gait disturbance [Recovering/Resolving]
  - Toxicity to various agents [Recovering/Resolving]
  - Confusional state [Recovering/Resolving]
  - Acute prerenal failure [Recovering/Resolving]
  - Antipsychotic drug level increased [Recovering/Resolving]
